FAERS Safety Report 15530270 (Version 1)
Quarter: 2018Q4

REPORT INFORMATION
  Report Type: Other
  Country: US (occurrence: US)
  Receive Date: 20181018
  Receipt Date: 20181018
  Transmission Date: 20190205
  Serious: Yes (Other)
  Sender: FDA-Public Use
  Company Number: US-STANDARD HOMEOPATHIC COMPANY-2056349

PATIENT
  Sex: Male

DRUGS (1)
  1. LEG CRAMPS PM [Suspect]
     Active Substance: HOMEOPATHICS
     Route: 060
     Dates: start: 20181007, end: 20181008

REACTIONS (1)
  - Urinary retention [Unknown]

NARRATIVE: CASE EVENT DATE: 20181008
